FAERS Safety Report 16582045 (Version 1)
Quarter: 2019Q3

REPORT INFORMATION
  Report Type: Spontaneous
  Country: AU (occurrence: AU)
  Receive Date: 20190717
  Receipt Date: 20190717
  Transmission Date: 20191004
  Serious: Yes (Other)
  Sender: FDA-Public Use
  Company Number: PHHY2019AU156813

PATIENT
  Age: 58 Year
  Sex: Female

DRUGS (1)
  1. RANITIDINE. [Suspect]
     Active Substance: RANITIDINE
     Indication: ABDOMINAL PAIN
     Dosage: UNK
     Route: 048

REACTIONS (12)
  - Pericardial effusion [Unknown]
  - Abnormal faeces [Unknown]
  - Osteolysis [Unknown]
  - Blood albumin increased [Unknown]
  - Tryptase increased [Unknown]
  - Blood alkaline phosphatase increased [Unknown]
  - Neutrophil morphology abnormal [Unknown]
  - Lymphadenopathy [Unknown]
  - Systemic mastocytosis [Unknown]
  - Osteosclerosis [Unknown]
  - Mastocytosis [Unknown]
  - Hepatic cyst [Unknown]

NARRATIVE: CASE EVENT DATE: 20190205
